FAERS Safety Report 14346798 (Version 3)
Quarter: 2021Q4

REPORT INFORMATION
  Report Type: Spontaneous
  Country: US (occurrence: US)
  Receive Date: 20180103
  Receipt Date: 20211125
  Transmission Date: 20220303
  Serious: Yes (Other)
  Sender: FDA-Public Use
  Company Number: US-PFIZER INC-2018000415

PATIENT
  Age: 68 Year
  Sex: Female
  Weight: 54.43 kg

DRUGS (2)
  1. IBRANCE [Suspect]
     Active Substance: PALBOCICLIB
     Dosage: 125 MG, UNK
  2. IBRANCE [Suspect]
     Active Substance: PALBOCICLIB
     Dosage: 100 MG

REACTIONS (3)
  - Respiratory tract infection [Unknown]
  - Full blood count decreased [Unknown]
  - Thinking abnormal [Unknown]
